FAERS Safety Report 14526460 (Version 3)
Quarter: 2018Q1

REPORT INFORMATION
  Report Type: Report from Study
  Country: US (occurrence: US)
  Receive Date: 20180213
  Receipt Date: 20180226
  Transmission Date: 20180509
  Serious: Yes (Death, Hospitalization)
  Sender: FDA-Public Use
  Company Number: US-ASTRAZENECA-2017SF14234

PATIENT
  Age: 1032 Month
  Sex: Female

DRUGS (13)
  1. TAGRISSO [Suspect]
     Active Substance: OSIMERTINIB
     Indication: NON-SMALL CELL LUNG CANCER
     Route: 048
     Dates: start: 20171031
  2. TAGRISSO [Suspect]
     Active Substance: OSIMERTINIB
     Indication: LUNG NEOPLASM MALIGNANT
     Route: 048
     Dates: start: 201711, end: 20180127
  3. ATORVASTATIN CALCIUM. [Concomitant]
     Active Substance: ATORVASTATIN CALCIUM
  4. FUROSEMIDE. [Concomitant]
     Active Substance: FUROSEMIDE
  5. TAGRISSO [Suspect]
     Active Substance: OSIMERTINIB
     Indication: NON-SMALL CELL LUNG CANCER
     Route: 048
     Dates: start: 201711, end: 20180127
  6. CARBIDOPA/LEVO [Concomitant]
     Indication: TREMOR
     Dosage: 25-100 MG, DAILY STARTED  2 OR 3 YEARS AGO.
  7. IRBESARTAN. [Concomitant]
     Active Substance: IRBESARTAN
  8. DRONABINOL. [Concomitant]
     Active Substance: DRONABINOL
  9. LEVODOPA [Concomitant]
     Active Substance: LEVODOPA
  10. COMBIVENT RESPIMAT [Concomitant]
     Active Substance: ALBUTEROL SULFATE\IPRATROPIUM BROMIDE
     Dosage: 20-100, UNK
  11. MEGESTROL ACETATE. [Concomitant]
     Active Substance: MEGESTROL ACETATE
     Dosage: 400MG/1, UNK
  12. TAGRISSO [Suspect]
     Active Substance: OSIMERTINIB
     Indication: LUNG NEOPLASM MALIGNANT
     Route: 048
     Dates: start: 20171031
  13. SODIUM CHLORIDE. [Concomitant]
     Active Substance: SODIUM CHLORIDE

REACTIONS (22)
  - Vitreous floaters [Unknown]
  - Pneumonia [Unknown]
  - General physical health deterioration [Unknown]
  - Somnolence [Unknown]
  - Body height decreased [Unknown]
  - Weight decreased [Unknown]
  - Constipation [Unknown]
  - Diarrhoea haemorrhagic [Not Recovered/Not Resolved]
  - Loss of consciousness [Unknown]
  - Dysphagia [Unknown]
  - Death [Fatal]
  - Pulmonary oedema [Unknown]
  - Haematochezia [Unknown]
  - Diarrhoea [Not Recovered/Not Resolved]
  - White blood cell count increased [Unknown]
  - Wrong technique in product usage process [Unknown]
  - Pneumonitis [Unknown]
  - Chest X-ray abnormal [Unknown]
  - Arrhythmia [Unknown]
  - Ejection fraction decreased [Unknown]
  - Aphonia [Unknown]
  - Decreased appetite [Unknown]

NARRATIVE: CASE EVENT DATE: 201801
